FAERS Safety Report 26097416 (Version 1)
Quarter: 2025Q4

REPORT INFORMATION
  Report Type: Spontaneous
  Country: GB (occurrence: GB)
  Receive Date: 20251127
  Receipt Date: 20251127
  Transmission Date: 20260118
  Serious: Yes (Other)
  Sender: SAMSUNG BIOEPIS
  Company Number: None

PATIENT
  Sex: Male
  Weight: 125 kg

DRUGS (1)
  1. ETANERCEPT [Suspect]
     Active Substance: ETANERCEPT
     Indication: Juvenile idiopathic arthritis
     Dosage: 50MG SUB CUT ONCE PER 2 WEEKS
     Route: 058
     Dates: start: 2018

REACTIONS (1)
  - Inflammatory myofibroblastic tumour [Recovering/Resolving]

NARRATIVE: CASE EVENT DATE: 20250301
